FAERS Safety Report 5508482-9 (Version None)
Quarter: 2007Q4

REPORT INFORMATION
  Report Type: 
  Country: None (occurrence: None)
  Receive Date: 20071031
  Receipt Date: 20070725
  Transmission Date: 20080405
  Serious: No
  Sender: FDA-Public Use
  Company Number: 200712481BWH

PATIENT
  Age: 53 Year
  Sex: Female

DRUGS (5)
  1. NEXAVAR [Suspect]
     Indication: RENAL CELL CARCINOMA STAGE UNSPECIFIED
     Dosage: 400 MG, BID, ORAL
     Route: 048
     Dates: start: 20070709
  2. LOPRESSOR [Concomitant]
  3. OXYCODONE HCL [Concomitant]
  4. COUMADIN [Concomitant]
  5. VITAMINS NOS [Concomitant]

REACTIONS (1)
  - BLOOD URINE PRESENT [None]
